FAERS Safety Report 7032813-4 (Version None)
Quarter: 2010Q4

REPORT INFORMATION
  Report Type: 
  Country: None (occurrence: None)
  Receive Date: 20101007
  Receipt Date: 20100929
  Transmission Date: 20110411
  Serious: Yes (Life-Threatening, Hospitalization)
  Sender: FDA-Public Use
  Company Number: US-ELI_LILLY_AND_COMPANY-US201008008896

PATIENT
  Sex: Female
  Weight: 86.81 kg

DRUGS (14)
  1. DULOXETINE HYDROCHLORIDE [Suspect]
     Indication: FIBROMYALGIA
     Dosage: 60 MG, DAILY (1/D)
     Dates: start: 20100501, end: 20100809
  2. OTHER PHARMA COMPANY INV DRUG [Suspect]
     Indication: FIBROMYALGIA
     Dosage: 50 MG, 2/D
     Route: 048
     Dates: start: 20100810, end: 20100816
  3. OTHER PHARMA COMPANY INV DRUG [Suspect]
     Dosage: 125 MG, DAILY (1/D)
     Route: 048
     Dates: start: 20100817, end: 20100819
  4. BYETTA [Concomitant]
     Indication: DIABETES MELLITUS
     Dosage: 5 MG, 2/D
     Route: 065
     Dates: start: 20080101
  5. METFORMIN [Concomitant]
     Indication: DIABETES MELLITUS
     Dosage: 1500 MG, DAILY (1/D)
     Route: 048
     Dates: start: 20070101
  6. LISINOPRIL [Concomitant]
     Indication: HYPERTENSION
     Dosage: 40 MEQ, DAILY (1/D)
     Route: 048
     Dates: start: 20050101
  7. HYDROCHLOROTHIAZIDE [Concomitant]
     Indication: HYPERTENSION
     Dosage: 40 MG, DAILY (1/D)
     Route: 048
     Dates: start: 20050101
  8. SIMVASTATIN [Concomitant]
     Indication: HYPERCHOLESTEROLAEMIA
     Dosage: 40 MG, DAILY (1/D)
     Route: 048
     Dates: start: 20080101
  9. TRILIPIX [Concomitant]
     Indication: HYPERCHOLESTEROLAEMIA
     Dosage: 45 MG, UNK
     Dates: start: 20090101
  10. LOPRESSOR [Concomitant]
     Indication: HYPERTENSION
     Dosage: 50 MG, 2/D
     Route: 048
     Dates: start: 20050101
  11. AMBIEN [Concomitant]
     Indication: INSOMNIA
     Dosage: 10 MG, AS NEEDED
     Route: 048
     Dates: start: 19900101
  12. VICODIN [Concomitant]
     Indication: FIBROMYALGIA
     Dosage: UNK, UNK
     Dates: start: 20080101, end: 20100727
  13. CALCIUM W/VITAMIN D NOS [Concomitant]
     Indication: SUPPLEMENTATION THERAPY
     Dosage: 4 D/F, UNKNOWN
     Route: 065
     Dates: start: 19980101
  14. TYLENOL /SCH/ [Concomitant]
     Indication: FIBROMYALGIA
     Dosage: 500 MG, AS NEEDED
     Dates: start: 19850101

REACTIONS (1)
  - ADVERSE DRUG REACTION [None]
